FAERS Safety Report 18051382 (Version 2)
Quarter: 2020Q3

REPORT INFORMATION
  Report Type: Not Available
  Country: US (occurrence: US)
  Receive Date: 20200721
  Receipt Date: 20200727
  Transmission Date: 20201103
  Serious: Yes (Death, Other)
  Sender: FDA-Public Use
  Company Number: US-NEUROCRINE BIOSCIENCES INC.-2020NBI02509

PATIENT
  Age: 46 Year
  Sex: Male

DRUGS (6)
  1. ATENOLOL. [Concomitant]
     Active Substance: ATENOLOL
  2. LAMOTRIGINE. [Concomitant]
     Active Substance: LAMOTRIGINE
  3. CECLOR [Concomitant]
     Active Substance: CEFACLOR
  4. INGREZZA [Suspect]
     Active Substance: VALBENAZINE
     Indication: TARDIVE DYSKINESIA
     Route: 048
     Dates: start: 20190912
  5. LORAZEPAM. [Concomitant]
     Active Substance: LORAZEPAM
  6. ODEFSEY [Concomitant]
     Active Substance: EMTRICITABINE\RILPIVIRINE HYDROCHLORIDE\TENOFOVIR ALAFENAMIDE FUMARATE
     Dosage: EMTRICITABINE 200MG / RILPIVIRINE 25 MG / TENOFOVIR ALAFENAMIDE 25 MG

REACTIONS (2)
  - Dystonia [Unknown]
  - Death [Fatal]

NARRATIVE: CASE EVENT DATE: 20200428
